FAERS Safety Report 10204850 (Version 1)
Quarter: 2014Q2

REPORT INFORMATION
  Report Type: Report from Study
  Country: ES (occurrence: ES)
  Receive Date: 20140529
  Receipt Date: 20140529
  Transmission Date: 20141212
  Serious: Yes (Hospitalization)
  Sender: FDA-Public Use
  Company Number: ES-PFIZER INC-2014145677

PATIENT
  Age: 82 Year
  Sex: Female

DRUGS (6)
  1. ALDACTONE [Suspect]
     Indication: CARDIAC FAILURE
     Dosage: 25 MG, 1X/DAY
     Route: 048
     Dates: start: 2009, end: 20130824
  2. HYDROCHLOROTHIAZIDE [Interacting]
     Indication: HYPERTENSION
     Dosage: 50 MG, 1X/DAY
     Route: 048
     Dates: start: 201303, end: 20130824
  3. FAMCICLOVIR [Interacting]
     Indication: HERPES ZOSTER
     Dosage: 1 G, 1X/DAY
     Route: 048
     Dates: start: 20130802, end: 20130814
  4. DIGOXIN [Concomitant]
     Indication: ATRIAL FIBRILLATION
     Dosage: 1.5 MG, WEEKLY
     Route: 048
     Dates: start: 2009
  5. CARDURAN NEO [Concomitant]
     Dosage: 4 MG/DAY
     Route: 048
     Dates: start: 201005, end: 20130824
  6. NEBICUR [Concomitant]
     Indication: ATRIAL FIBRILLATION
     Dosage: 5 MG/DAY
     Route: 048
     Dates: start: 201009, end: 20130824

REACTIONS (5)
  - Drug interaction [Recovered/Resolved]
  - Renal failure acute [Recovered/Resolved]
  - Dyspnoea exertional [Recovered/Resolved]
  - Orthopnoea [Recovered/Resolved]
  - Oedema peripheral [Recovered/Resolved]
